FAERS Safety Report 12717940 (Version 1)
Quarter: 2016Q3

REPORT INFORMATION
  Report Type: Spontaneous
  Country: KR (occurrence: KR)
  Receive Date: 20160906
  Receipt Date: 20160906
  Transmission Date: 20161109
  Serious: Yes (Other)
  Sender: FDA-Public Use
  Company Number: KR-PFIZER INC-2016403285

PATIENT
  Age: 18 Year
  Sex: Male

DRUGS (4)
  1. CYTARABINE. [Suspect]
     Active Substance: CYTARABINE
     Indication: ACUTE MYELOID LEUKAEMIA
     Dosage: 1 DAY 200 MG/M2, UNK
     Route: 042
  2. DAUNORUBICIN [Suspect]
     Active Substance: DAUNORUBICIN
     Dosage: 1 DAY 45 MG/M2, UNK
     Route: 042
  3. CYTARABINE. [Suspect]
     Active Substance: CYTARABINE
     Dosage: 1 DAY 200 MG/M2, UNK
     Route: 042
  4. DAUNORUBICIN [Suspect]
     Active Substance: DAUNORUBICIN
     Indication: ACUTE MYELOID LEUKAEMIA
     Dosage: 1 DAY 90 MG/M2, UNK
     Route: 042

REACTIONS (1)
  - Histiocytosis haematophagic [Recovering/Resolving]
